FAERS Safety Report 13599450 (Version 2)
Quarter: 2017Q3

REPORT INFORMATION
  Report Type: Spontaneous
  Country: US (occurrence: US)
  Receive Date: 20170531
  Receipt Date: 20170806
  Transmission Date: 20171127
  Serious: No
  Sender: FDA-Public Use
  Company Number: GXBR2016US002745

PATIENT
  Age: 73 Year
  Sex: Female
  Weight: 68.48 kg

DRUGS (3)
  1. TYVASO [Suspect]
     Active Substance: TREPROSTINIL
     Dosage: UNK
     Route: 055
  2. TYVASO [Suspect]
     Active Substance: TREPROSTINIL
     Indication: PULMONARY ARTERIAL HYPERTENSION
     Dosage: 0.6 MG/ML, QID (3 TO 9 BREATHS)
     Route: 055
     Dates: start: 20160506, end: 20160811
  3. NYSTATIN. [Suspect]
     Active Substance: NYSTATIN
     Indication: CANDIDA INFECTION
     Dosage: 1000000 IU, UNK
     Route: 065

REACTIONS (12)
  - Dyspnoea [Unknown]
  - Weight decreased [Recovering/Resolving]
  - Depressed mood [Unknown]
  - Diarrhoea [Recovering/Resolving]
  - Malaise [Recovering/Resolving]
  - Productive cough [Unknown]
  - Headache [Unknown]
  - Dyspepsia [Unknown]
  - Flatulence [Unknown]
  - Abdominal pain upper [Unknown]
  - Nausea [Recovering/Resolving]
  - Candida infection [Unknown]

NARRATIVE: CASE EVENT DATE: 201605
